FAERS Safety Report 4336099-0 (Version None)
Quarter: 2004Q2

REPORT INFORMATION
  Report Type: 
  Country: None (occurrence: None)
  Receive Date: 20040406
  Receipt Date: 20040324
  Transmission Date: 20050107
  Serious: Yes (Hospitalization)
  Sender: FDA-Public Use
  Company Number: 2004AP01935

PATIENT
  Age: 69 Year
  Sex: Male

DRUGS (3)
  1. OMEPRAZOLE [Suspect]
     Indication: GASTRIC ULCER HAEMORRHAGE
     Dosage: 40 MG DAILY PO
     Route: 048
     Dates: start: 20040316, end: 20040319
  2. CEFMETAZON [Concomitant]
  3. NO MATCH [Concomitant]

REACTIONS (2)
  - HYPONATRAEMIA [None]
  - INTERSTITIAL LUNG DISEASE [None]
